FAERS Safety Report 8537852-X (Version None)
Quarter: 2012Q3

REPORT INFORMATION
  Report Type: 
  Country: None (occurrence: None)
  Receive Date: 20120725
  Receipt Date: 20120712
  Transmission Date: 20120928
  Serious: No
  Sender: FDA-Public Use
  Company Number: US-ASTRAZENECA-2012SE48706

PATIENT
  Age: 58 Year
  Sex: Female

DRUGS (5)
  1. SEROQUEL XR [Suspect]
     Route: 048
  2. LITHIUM CARBONATE [Concomitant]
  3. SEROQUEL XR [Suspect]
     Indication: SLEEP DISORDER
     Route: 048
  4. SEROQUEL XR [Suspect]
     Route: 048
  5. SEROQUEL XR [Suspect]
     Indication: AFFECTIVE DISORDER
     Route: 048

REACTIONS (4)
  - DRUG DOSE OMISSION [None]
  - NERVOUSNESS [None]
  - INTENTIONAL DRUG MISUSE [None]
  - DRUG WITHDRAWAL SYNDROME [None]
